FAERS Safety Report 16356384 (Version 1)
Quarter: 2019Q2

REPORT INFORMATION
  Report Type: Spontaneous
  Country: NZ (occurrence: NZ)
  Receive Date: 20190527
  Receipt Date: 20190527
  Transmission Date: 20190711
  Serious: Yes (Life-Threatening, Other)
  Sender: FDA-Public Use
  Company Number: NZ-ROCHE-2323640

PATIENT
  Age: 53 Year
  Sex: Female

DRUGS (8)
  1. IFOSFAMIDE. [Concomitant]
     Active Substance: IFOSFAMIDE
  2. CARBOPLATIN. [Concomitant]
     Active Substance: CARBOPLATIN
  3. RITUXIMAB. [Suspect]
     Active Substance: RITUXIMAB
     Indication: MANTLE CELL LYMPHOMA
     Route: 041
  4. VINCRISTINE [Concomitant]
     Active Substance: VINCRISTINE
  5. PREDNISONE. [Concomitant]
     Active Substance: PREDNISONE
  6. DOXORUBICIN [Concomitant]
     Active Substance: DOXORUBICIN
  7. CYCLOPHOSPHAMIDE. [Concomitant]
     Active Substance: CYCLOPHOSPHAMIDE
  8. ETOPOSIDE. [Concomitant]
     Active Substance: ETOPOSIDE

REACTIONS (3)
  - Infusion related reaction [Unknown]
  - Splenic rupture [Unknown]
  - Thrombocytopenia [Unknown]
